FAERS Safety Report 8366343-4 (Version None)
Quarter: 2012Q2

REPORT INFORMATION
  Report Type: 
  Country: None (occurrence: None)
  Receive Date: 20120517
  Receipt Date: 20120515
  Transmission Date: 20120825
  Serious: Yes (Hospitalization)
  Sender: FDA-Public Use
  Company Number: PHHO2009US15453

PATIENT
  Sex: Female
  Weight: 68 kg

DRUGS (4)
  1. ZORTRESS [Suspect]
     Indication: LIVER TRANSPLANT
     Dosage: 1 MG, BID
     Route: 048
     Dates: start: 20091125, end: 20091222
  2. FLUCONAZOLE [Concomitant]
     Indication: PROPHYLAXIS
     Dosage: 400 MG, /DAY
     Route: 048
     Dates: start: 20091024, end: 20091206
  3. TACROLIMUS [Suspect]
     Indication: LIVER TRANSPLANT
     Dosage: 2MG AM, 1.5MG PM
     Route: 048
     Dates: start: 20091025, end: 20091222
  4. PREDNISONE TAB [Suspect]
     Indication: LIVER TRANSPLANT
     Dosage: 12.5 MG, DAILYK
     Route: 048
     Dates: start: 20091024

REACTIONS (6)
  - LIVER TRANSPLANT REJECTION [None]
  - LIVER FUNCTION TEST ABNORMAL [None]
  - POST TRANSPLANT LYMPHOPROLIFERATIVE DISORDER [None]
  - HEPATITIS C [None]
  - ABDOMINAL PAIN [None]
  - ANGINA PECTORIS [None]
